APPROVED DRUG PRODUCT: LAMIVUDINE
Active Ingredient: LAMIVUDINE
Strength: 100MG
Dosage Form/Route: TABLET;ORAL
Application: A211306 | Product #001 | TE Code: AB
Applicant: ANNORA PHARMA PRIVATE LTD
Approved: Mar 21, 2019 | RLD: No | RS: No | Type: RX